FAERS Safety Report 22645429 (Version 1)
Quarter: 2023Q2

REPORT INFORMATION
  Report Type: Spontaneous
  Country: US (occurrence: None)
  Receive Date: 20230623
  Receipt Date: 20230623
  Transmission Date: 20230722
  Serious: No
  Sender: FDA-Public Use
  Company Number: None

PATIENT
  Sex: Female

DRUGS (1)
  1. KESIMPTA [Suspect]
     Active Substance: OFATUMUMAB
     Indication: Multiple sclerosis
     Dosage: FREQUENCY : MONTHLY;?
     Route: 058
     Dates: start: 202210

REACTIONS (8)
  - Drug ineffective [None]
  - Muscle spasms [None]
  - Muscular weakness [None]
  - Asthenia [None]
  - Throat irritation [None]
  - Cough [None]
  - Pain in extremity [None]
  - Formication [None]
